FAERS Safety Report 12712141 (Version 1)
Quarter: 2016Q3

REPORT INFORMATION
  Report Type: Spontaneous
  Country: GB (occurrence: GB)
  Receive Date: 20160902
  Receipt Date: 20160902
  Transmission Date: 20161109
  Serious: Yes (Life-Threatening, Other)
  Sender: FDA-Public Use
  Company Number: GB-TEVA-2016-12525

PATIENT
  Age: 62 Year
  Sex: Male

DRUGS (1)
  1. ACTAVIS PREDNISOLONE 5MG [Suspect]
     Active Substance: PREDNISOLONE
     Indication: FACIAL PARALYSIS
     Dosage: 60 MILLIGRAM DAILY;
     Route: 048
     Dates: start: 20160610

REACTIONS (1)
  - Myocardial infarction [Unknown]

NARRATIVE: CASE EVENT DATE: 20160611
